FAERS Safety Report 16965316 (Version 1)
Quarter: 2019Q4

REPORT INFORMATION
  Report Type: Report from Study
  Country: US (occurrence: US)
  Receive Date: 20191028
  Receipt Date: 20191028
  Transmission Date: 20200122
  Serious: Yes (Other)
  Sender: FDA-Public Use
  Company Number: US-BAYER-2019-189903

PATIENT
  Sex: Female

DRUGS (1)
  1. ASPIRIN. [Suspect]
     Active Substance: ASPIRIN
     Indication: PROPHYLAXIS
     Dosage: UNK

REACTIONS (7)
  - Off label use [None]
  - Contraindicated product administered [None]
  - Gestational diabetes [None]
  - Maternal exposure during pregnancy [None]
  - Contraindicated product prescribed [None]
  - Product use in unapproved indication [None]
  - Product monitoring error [None]
